FAERS Safety Report 10248690 (Version 1)
Quarter: 2014Q2

REPORT INFORMATION
  Report Type: Spontaneous
  Country: US (occurrence: None)
  Receive Date: 20140617
  Receipt Date: 20140617
  Transmission Date: 20141212
  Serious: Yes (Other)
  Sender: FDA-Public Use
  Company Number: None

PATIENT
  Age: 38 Year
  Sex: Male
  Weight: 94.5 kg

DRUGS (5)
  1. PERCOCET [Suspect]
     Indication: BREAKTHROUGH PAIN
     Dosage: 10/325 MG 2-4 DAILY ORAL
     Route: 048
  2. PERCOCET [Suspect]
     Indication: INTERVERTEBRAL DISC DEGENERATION
     Dosage: 10/325 MG 2-4 DAILY ORAL
     Route: 048
  3. PERCOCET [Suspect]
     Indication: NEUROPATHY PERIPHERAL
     Dosage: 10/325 MG 2-4 DAILY ORAL
     Route: 048
  4. CLONAZEPAM [Concomitant]
     Indication: ANXIETY
     Dosage: 0.5 MG 1 DAILY ORAL
     Route: 048
  5. CLONAZEPAM [Concomitant]
     Indication: SLEEP DISORDER
     Dosage: 0.5 MG 1 DAILY ORAL
     Route: 048

REACTIONS (2)
  - Drug ineffective [None]
  - Product substitution issue [None]
